FAERS Safety Report 15845493 (Version 4)
Quarter: 2019Q1

REPORT INFORMATION
  Report Type: Report from Study
  Country: BE (occurrence: BE)
  Receive Date: 20190119
  Receipt Date: 20190212
  Transmission Date: 20190417
  Serious: Yes (Death, Hospitalization)
  Sender: FDA-Public Use
  Company Number: BE-AMGEN-BELNI2019007196

PATIENT
  Age: 72 Year
  Sex: Female
  Weight: 51 kg

DRUGS (13)
  1. CARFILZOMIB [Suspect]
     Active Substance: CARFILZOMIB
     Indication: PLASMA CELL MYELOMA
     Dosage: 20 MG/M2, UNK
     Route: 042
     Dates: start: 20190102
  2. D-CURE [Concomitant]
     Active Substance: CHOLECALCIFEROL
     Dosage: 25000 UNK, UNK
     Dates: start: 20180116, end: 20190114
  3. DEXAMETHASONE. [Suspect]
     Active Substance: DEXAMETHASONE
     Indication: PLASMA CELL MYELOMA
     Dosage: 20 MG, UNK
     Route: 065
     Dates: start: 20190102
  4. ISOTEN [Concomitant]
     Dosage: 2.5 MG, UNK
     Dates: start: 20180122, end: 20190116
  5. ACICLOVIR [Concomitant]
     Active Substance: ACYCLOVIR
     Dosage: 400 MG, UNK
     Dates: start: 20180117, end: 20190117
  6. NOVOLIZER FORMOTEROL [Concomitant]
     Dosage: 1 UNK, UNK
     Dates: start: 20180109, end: 20190114
  7. CARFILZOMIB [Suspect]
     Active Substance: CARFILZOMIB
     Dosage: 56 MG/M2, UNK
     Route: 042
     Dates: start: 20190109
  8. PRAVASINE [Concomitant]
     Active Substance: PRAVASTATIN SODIUM
     Dosage: 40 MG, UNK
  9. OXYCODONE [Concomitant]
     Active Substance: OXYCODONE
     Dosage: 10 MG, UNK
     Dates: start: 20181206, end: 20190116
  10. OXYNORM [Concomitant]
     Active Substance: OXYCODONE HYDROCHLORIDE
     Dosage: 10 MG, UNK
     Dates: start: 20181206, end: 20190116
  11. CALCIUM [Concomitant]
     Active Substance: CALCIUM
     Dosage: 1 G, UNK
     Dates: start: 20180116, end: 20190114
  12. SPIRIVA [Concomitant]
     Active Substance: TIOTROPIUM BROMIDE MONOHYDRATE
     Dosage: 2 UNK, UNK
     Dates: start: 20180109, end: 20190114
  13. DAFALGAN [Concomitant]
     Active Substance: ACETAMINOPHEN
     Dosage: 1 G, UNK
     Dates: start: 20180830, end: 20190114

REACTIONS (1)
  - Acute myocardial infarction [Fatal]

NARRATIVE: CASE EVENT DATE: 20190115
